FAERS Safety Report 4608384-6 (Version None)
Quarter: 2005Q1

REPORT INFORMATION
  Report Type: 
  Country: None (occurrence: None)
  Receive Date: 20050315
  Receipt Date: 20050303
  Transmission Date: 20050727
  Serious: Yes (Other)
  Sender: FDA-Public Use
  Company Number: US-JNJFOC-20050301172

PATIENT
  Sex: Male
  Weight: 121.11 kg

DRUGS (1)
  1. REMICADE [Suspect]
     Route: 042

REACTIONS (7)
  - GALLBLADDER OPERATION [None]
  - LUNG DISORDER [None]
  - NASAL OPERATION [None]
  - NEOPLASM MALIGNANT [None]
  - SKIN GRAFT [None]
  - SURGERY [None]
  - TESTICULAR DISORDER [None]
